FAERS Safety Report 18810193 (Version 1)
Quarter: 2021Q1

REPORT INFORMATION
  Report Type: Other
  Country: US (occurrence: US)
  Receive Date: 20210129
  Receipt Date: 20210129
  Transmission Date: 20210419
  Serious: Yes (Life-Threatening)
  Sender: FDA-Public Use
  Company Number: US-RIGHT VALUE DRUG STORES, LLC-2106037

PATIENT
  Age: 45 Year
  Sex: Female
  Weight: 57.27 kg

DRUGS (2)
  1. TESTOSTERONE 100 MG PEL [Suspect]
     Active Substance: TESTOSTERONE
     Route: 058
     Dates: start: 20191216, end: 20200928
  2. ESTRADIOL. [Suspect]
     Active Substance: ESTRADIOL
     Route: 058
     Dates: start: 20200316, end: 20200928

REACTIONS (1)
  - Ovarian cancer stage III [Unknown]

NARRATIVE: CASE EVENT DATE: 20201214
